FAERS Safety Report 24227165 (Version 1)
Quarter: 2024Q3

REPORT INFORMATION
  Report Type: Report from Study
  Country: CA (occurrence: CA)
  Receive Date: 20240820
  Receipt Date: 20240820
  Transmission Date: 20241016
  Serious: Yes (Other)
  Sender: OTSUKA
  Company Number: CA-OTSUKA-2024_017854

PATIENT
  Age: 42 Year
  Sex: Male

DRUGS (3)
  1. TOLVAPTAN [Suspect]
     Active Substance: TOLVAPTAN
     Indication: Congenital cystic kidney disease
     Dosage: 90 MG, QD
     Route: 048
     Dates: start: 20230301
  2. TOLVAPTAN [Suspect]
     Active Substance: TOLVAPTAN
     Indication: Congenital cystic kidney disease
     Dosage: 60 MG, QD (EVERY MORNING) (QAM)
     Route: 048
     Dates: start: 202407
  3. TOLVAPTAN [Suspect]
     Active Substance: TOLVAPTAN
     Dosage: 30 MG, QD (EVERY EVENING) (QPM)
     Route: 048
     Dates: start: 202407

REACTIONS (7)
  - Tendon rupture [Recovering/Resolving]
  - Blood creatinine increased [Unknown]
  - Glomerular filtration rate abnormal [Unknown]
  - Hypertension [Unknown]
  - Dry mouth [Unknown]
  - Thirst [Unknown]
  - Pollakiuria [Unknown]

NARRATIVE: CASE EVENT DATE: 20240601
